FAERS Safety Report 9292329 (Version 1)
Quarter: 2013Q2

REPORT INFORMATION
  Report Type: Spontaneous
  Country: US (occurrence: US)
  Receive Date: 20130516
  Receipt Date: 20130516
  Transmission Date: 20140414
  Serious: Yes (Hospitalization)
  Sender: FDA-Public Use
  Company Number: PHEH2013US010661

PATIENT
  Sex: Female

DRUGS (9)
  1. TASIGNA [Suspect]
     Dosage: 600 MG, UNK
     Route: 048
  2. TASIGNA [Suspect]
     Dosage: 400 MG, UNK
  3. JANUVIA [Suspect]
  4. VITAMIN B3 [Suspect]
  5. ALBUTEROL [Concomitant]
  6. GLUCOVANCE [Concomitant]
  7. LISINOPRIL [Concomitant]
     Dosage: 5 MG
  8. LANTUS [Concomitant]
     Dosage: 15 U
  9. MOTRIN [Concomitant]

REACTIONS (1)
  - Pancreatitis [Unknown]
